FAERS Safety Report 19644888 (Version 1)
Quarter: 2021Q3

REPORT INFORMATION
  Report Type: Spontaneous
  Country: US (occurrence: US)
  Receive Date: 20210802
  Receipt Date: 20210802
  Transmission Date: 20211014
  Serious: No
  Sender: FDA-Public Use
  Company Number: US-ORGANON-O2107USA002352

PATIENT
  Age: 43 Year
  Sex: Female

DRUGS (4)
  1. GANIRELIX ACETATE INJECTION [Suspect]
     Active Substance: GANIRELIX ACETATE
     Indication: ANOVULATORY CYCLE
     Dosage: STRENGHT: 250 MCG/0.5 ML, SINGLE USE INJECTION ONCE PER DAY
     Dates: start: 20210615, end: 20210621
  2. HCG [Concomitant]
     Active Substance: GONADOTROPHIN, CHORIONIC
     Dosage: UNK
     Dates: start: 20210610, end: 20210620
  3. OMNITROPE [Concomitant]
     Active Substance: SOMATROPIN
     Dosage: UNK
     Dates: start: 20210610, end: 20210620
  4. FOLLISTIM [Concomitant]
     Active Substance: FOLLITROPIN
     Dosage: UNK
     Dates: start: 20210610, end: 20210620

REACTIONS (1)
  - Treatment failure [Recovered/Resolved]

NARRATIVE: CASE EVENT DATE: 20210623
